FAERS Safety Report 10021631 (Version 4)
Quarter: 2014Q2

REPORT INFORMATION
  Report Type: Spontaneous
  Country: US (occurrence: US)
  Receive Date: 20140319
  Receipt Date: 20140513
  Transmission Date: 20141212
  Serious: Yes (Hospitalization, Other)
  Sender: FDA-Public Use
  Company Number: US-BAXTER-2014BAX012261

PATIENT
  Age: 50 Year
  Sex: Female
  Weight: 104.5 kg

DRUGS (17)
  1. DIANEAL LOW CALCIUM [Suspect]
     Indication: PERITONEAL DIALYSIS
     Route: 033
  2. DIANEAL LOW CALCIUM [Suspect]
     Route: 033
     Dates: start: 201401, end: 201402
  3. DIANEAL LOW CALCIUM [Suspect]
     Route: 033
     Dates: start: 20140304, end: 20140308
  4. DIANEAL LOW CALCIUM [Suspect]
     Indication: PERITONEAL DIALYSIS
     Route: 033
     Dates: start: 201401, end: 201402
  5. DIANEAL LOW CALCIUM [Suspect]
     Route: 033
     Dates: start: 20140304, end: 20140308
  6. EXTRANEAL [Suspect]
     Indication: PERITONEAL DIALYSIS
     Dosage: LAST FILL
     Route: 033
     Dates: start: 201401, end: 201402
  7. EXTRANEAL [Suspect]
     Route: 033
     Dates: start: 20140304, end: 20140308
  8. RENVELA [Concomitant]
     Indication: PRODUCT USED FOR UNKNOWN INDICATION
     Route: 065
  9. WELLBUTRIN [Concomitant]
     Indication: PRODUCT USED FOR UNKNOWN INDICATION
     Route: 065
  10. PRILOSEC [Concomitant]
     Indication: PRODUCT USED FOR UNKNOWN INDICATION
     Route: 065
  11. SENSIPAR [Concomitant]
     Indication: PRODUCT USED FOR UNKNOWN INDICATION
     Route: 065
  12. MORPHINE [Concomitant]
     Indication: PAIN
     Route: 048
     Dates: start: 2014
  13. MORPHINE [Concomitant]
     Indication: PERITONITIS
  14. VICODIN [Concomitant]
     Indication: PAIN
     Route: 048
     Dates: start: 2014
  15. VICODIN [Concomitant]
     Indication: PERITONITIS
  16. ONDANSETRON [Concomitant]
     Indication: VOMITING
     Route: 048
     Dates: start: 2014
  17. ONDANSETRON [Concomitant]
     Indication: PERITONITIS

REACTIONS (5)
  - Diarrhoea haemorrhagic [Unknown]
  - Abdominal pain [Unknown]
  - Peritonitis bacterial [Recovered/Resolved]
  - Influenza [Unknown]
  - Procedural pain [Unknown]
